FAERS Safety Report 4726883-3 (Version None)
Quarter: 2005Q3

REPORT INFORMATION
  Report Type: 
  Country: None (occurrence: None)
  Receive Date: 20050726
  Receipt Date: 20050315
  Transmission Date: 20060218
  Serious: Yes (Other)
  Sender: FDA-Public Use
  Company Number: 805#1#2005-00011

PATIENT
  Age: 14 Day
  Sex: Male

DRUGS (6)
  1. PROSTANDIN                                          (ALPROSTADIL (PAOD [Suspect]
     Indication: HEART DISEASE CONGENITAL
     Dosage: 50 NG/KG/MIN; 100NG/KG/MIN; 120NG/KG/MIN; INTRAVENOUS DRIP
     Route: 041
     Dates: start: 20050108, end: 20050109
  2. PROSTANDIN                                          (ALPROSTADIL (PAOD [Suspect]
     Indication: HEART DISEASE CONGENITAL
     Dosage: 50 NG/KG/MIN; 100NG/KG/MIN; 120NG/KG/MIN; INTRAVENOUS DRIP
     Route: 041
     Dates: start: 20050109, end: 20050111
  3. PROSTANDIN                                          (ALPROSTADIL (PAOD [Suspect]
     Indication: HEART DISEASE CONGENITAL
     Dosage: 50 NG/KG/MIN; 100NG/KG/MIN; 120NG/KG/MIN; INTRAVENOUS DRIP
     Route: 041
     Dates: start: 20050111, end: 20050114
  4. DOPAMINE HCL [Concomitant]
  5. MENATETRONE [Concomitant]
  6. FUROSEMIDE [Concomitant]

REACTIONS (8)
  - BASE EXCESS INCREASED [None]
  - BLOOD PRESSURE SYSTOLIC DECREASED [None]
  - CONDITION AGGRAVATED [None]
  - HEART RATE INCREASED [None]
  - NEONATAL APNOEIC ATTACK [None]
  - PATENT DUCTUS ARTERIOSUS [None]
  - RESPIRATORY RATE INCREASED [None]
  - URINE OUTPUT DECREASED [None]
